FAERS Safety Report 21633886 (Version 1)
Quarter: 2022Q4

REPORT INFORMATION
  Report Type: Spontaneous
  Country: US (occurrence: None)
  Receive Date: 20221122
  Receipt Date: 20221122
  Transmission Date: 20230112
  Serious: No
  Sender: FDA-Public Use
  Company Number: None

PATIENT
  Age: 57 Year
  Sex: Female
  Weight: 54.61 kg

DRUGS (4)
  1. IBRANCE [Suspect]
     Active Substance: PALBOCICLIB
     Indication: Breast cancer female
     Dosage: OTHER FREQUENCY : 21DON7DOFF;?
     Route: 048
     Dates: start: 202207
  2. FLUTICASONE [Concomitant]
  3. METOPROLOL [Concomitant]
     Active Substance: METOPROLOL
  4. OXYCODONE [Concomitant]

REACTIONS (1)
  - Full blood count abnormal [None]
